FAERS Safety Report 9016664 (Version 1)
Quarter: 2013Q1

REPORT INFORMATION
  Report Type: Spontaneous
  Country: US (occurrence: US)
  Receive Date: 20130117
  Receipt Date: 20130117
  Transmission Date: 20140127
  Serious: Yes (Hospitalization)
  Sender: FDA-Public Use
  Company Number: US-AMGEN-USASP2013001434

PATIENT
  Sex: Female

DRUGS (1)
  1. PROLIA [Suspect]
     Indication: OSTEOPOROSIS POSTMENOPAUSAL
     Dosage: UNK

REACTIONS (4)
  - Fall [Unknown]
  - Hip fracture [Recovered/Resolved]
  - Pain [Not Recovered/Not Resolved]
  - Gait disturbance [Not Recovered/Not Resolved]
